FAERS Safety Report 6219372-0 (Version None)
Quarter: 2009Q2

REPORT INFORMATION
  Report Type: 
  Country: None (occurrence: None)
  Receive Date: 20090605
  Receipt Date: 20090605
  Transmission Date: 20091009
  Serious: Yes (Other)
  Sender: FDA-Public Use
  Company Number: None

PATIENT
  Age: 14 Year
  Sex: Male
  Weight: 57.1532 kg

DRUGS (8)
  1. RISPERDAL [Suspect]
     Indication: AGGRESSION
     Dosage: 2MG BID PO (ABOUT A YEAR)
     Route: 048
  2. RISPERDAL [Suspect]
     Indication: ATTENTION DEFICIT/HYPERACTIVITY DISORDER
     Dosage: 2MG BID PO (ABOUT A YEAR)
     Route: 048
  3. CLONIDINE [Concomitant]
  4. ZOLOFT [Concomitant]
  5. ZACLIR [Concomitant]
  6. VYVANSE [Concomitant]
  7. FOCALIN XR [Concomitant]
  8. PERIACTIN [Concomitant]

REACTIONS (4)
  - BLOOD PROLACTIN INCREASED [None]
  - GALACTORRHOEA [None]
  - GYNAECOMASTIA [None]
  - PITUITARY TUMOUR BENIGN [None]
